FAERS Safety Report 9336682 (Version 5)
Quarter: 2013Q3

REPORT INFORMATION
  Report Type: Spontaneous
  Country: PT (occurrence: PT)
  Receive Date: 20130607
  Receipt Date: 20130808
  Transmission Date: 20140515
  Serious: Yes (Death, Other)
  Sender: FDA-Public Use
  Company Number: PT-MILLENNIUM PHARMACEUTICALS, INC.-2013-04339

PATIENT
  Sex: 0

DRUGS (3)
  1. VELCADE [Suspect]
     Indication: PLASMA CELL MYELOMA
     Dosage: 1.3 MG/M2, CYCLIC
     Route: 042
  2. MELPHALAN [Suspect]
     Indication: PLASMA CELL MYELOMA
     Dosage: 9 MG/M2, CYCLIC
     Route: 065
  3. PREDNISOLONE [Suspect]
     Indication: PLASMA CELL MYELOMA
     Dosage: 100 MG, CYCLIC
     Route: 065

REACTIONS (4)
  - Acute pulmonary oedema [Fatal]
  - Pneumonia [Fatal]
  - Haematotoxicity [Unknown]
  - Neuropathy peripheral [Unknown]
